FAERS Safety Report 14979517 (Version 1)
Quarter: 2018Q2

REPORT INFORMATION
  Report Type: Spontaneous
  Country: US (occurrence: US)
  Receive Date: 20180516
  Receipt Date: 20180516
  Transmission Date: 20180711
  Serious: Yes (Hospitalization)
  Sender: FDA-Public Use
  Company Number: None

PATIENT
  Age: 29 Year
  Sex: Female
  Weight: 56.25 kg

DRUGS (6)
  1. BUSPIRONE [Concomitant]
     Active Substance: BUSPIRONE HYDROCHLORIDE
  2. MELATONIN [Concomitant]
     Active Substance: MELATONIN
  3. IBUPROFEN. [Concomitant]
     Active Substance: IBUPROFEN
  4. TRAMADOL. [Concomitant]
     Active Substance: TRAMADOL
  5. HALDOL [Suspect]
     Active Substance: HALOPERIDOL
     Indication: SEDATIVE THERAPY
     Dosage: QUANTITY:4 INJECTION(S);OTHER FREQUENCY:EVERY HOUR;?
     Route: 042
  6. DEXTROAMP-AMPHETAMIN [Concomitant]

REACTIONS (8)
  - Hyperhidrosis [None]
  - Documented hypersensitivity to administered product [None]
  - Heart rate increased [None]
  - Poisoning [None]
  - Aggression [None]
  - Drug interaction [None]
  - Jaundice [None]
  - Serotonin syndrome [None]

NARRATIVE: CASE EVENT DATE: 20180506
